FAERS Safety Report 24004863 (Version 1)
Quarter: 2024Q2

REPORT INFORMATION
  Report Type: Report from Study
  Country: IT (occurrence: IT)
  Receive Date: 20240624
  Receipt Date: 20240624
  Transmission Date: 20240716
  Serious: Yes (Death, Life-Threatening, Other)
  Sender: FDA-Public Use
  Company Number: IT-MLMSERVICE-20240606-PI089806-00044-1

PATIENT
  Age: 20 Year
  Sex: Male

DRUGS (2)
  1. ALPRAZOLAM [Suspect]
     Active Substance: ALPRAZOLAM
     Indication: Product used for unknown indication
     Dosage: UNK
     Route: 065
  2. DIAZEPAM [Suspect]
     Active Substance: DIAZEPAM
     Indication: Product used for unknown indication
     Dosage: UNK
     Route: 065

REACTIONS (7)
  - Depressed level of consciousness [Fatal]
  - Pulmonary oedema [Fatal]
  - Respiratory depression [Fatal]
  - Brain oedema [Fatal]
  - Pulmonary alveolar haemorrhage [Fatal]
  - Toxicity to various agents [Fatal]
  - Lung hyperinflation [Fatal]
